FAERS Safety Report 11759311 (Version 1)
Quarter: 2015Q4

REPORT INFORMATION
  Report Type: Spontaneous
  Country: US (occurrence: US)
  Receive Date: 20151120
  Receipt Date: 20151120
  Transmission Date: 20160304
  Serious: No
  Sender: FDA-Public Use
  Company Number: US-JNJFOC-20151103081

PATIENT
  Age: 82 Year
  Sex: Female
  Weight: 54.43 kg

DRUGS (8)
  1. ROGAINE [Suspect]
     Active Substance: MINOXIDIL
     Indication: ALOPECIA
     Route: 065
  2. ROGAINE [Suspect]
     Active Substance: MINOXIDIL
     Route: 065
  3. HAIR NUTRITION [Concomitant]
     Indication: HAIR GROWTH ABNORMAL
     Dosage: 5+ YEARS
     Route: 065
  4. VITAMIN B12 [Concomitant]
     Active Substance: CYANOCOBALAMIN
     Indication: ROUTINE HEALTH MAINTENANCE
     Dosage: 5+ YEARS
     Route: 065
  5. OTHER THERAPEUTIC PRODUCTS [Concomitant]
     Active Substance: UNSPECIFIED INGREDIENT
     Indication: ROUTINE HEALTH MAINTENANCE
     Dosage: 5+ YEARS
     Route: 065
  6. VITAMINE A [Concomitant]
     Active Substance: RETINOL
     Indication: ROUTINE HEALTH MAINTENANCE
     Dosage: 5+ YEARS
     Route: 065
  7. BIOTIN [Concomitant]
     Active Substance: BIOTIN
     Indication: ROUTINE HEALTH MAINTENANCE
     Dosage: 5+  YEARS
     Route: 065
  8. EQUISETUM ARVENSE [Concomitant]
     Active Substance: EQUISETUM ARVENSE TOP
     Indication: ROUTINE HEALTH MAINTENANCE
     Dosage: 5+ YEARS
     Route: 065

REACTIONS (1)
  - Product use issue [Unknown]
